APPROVED DRUG PRODUCT: BROMPHERIL
Active Ingredient: DEXBROMPHENIRAMINE MALEATE; PSEUDOEPHEDRINE SULFATE
Strength: 6MG;120MG
Dosage Form/Route: TABLET, EXTENDED RELEASE;ORAL
Application: A089116 | Product #001
Applicant: COPLEY PHARMACEUTICAL INC
Approved: Jan 22, 1987 | RLD: No | RS: No | Type: DISCN